FAERS Safety Report 4622847-9 (Version None)
Quarter: 2005Q1

REPORT INFORMATION
  Report Type: 
  Country: None (occurrence: None)
  Receive Date: 20050330
  Receipt Date: 20050324
  Transmission Date: 20050727
  Serious: Yes (Hospitalization)
  Sender: FDA-Public Use
  Company Number: 125

PATIENT
  Age: 67 Year
  Sex: Male
  Weight: 106 kg

DRUGS (13)
  1. MELPHALAN [Suspect]
     Indication: MULTIPLE MYELOMA
     Route: 042
     Dates: start: 20041026
  2. THALIDOMIDE [Suspect]
     Indication: MULTIPLE MYELOMA
     Dosage: 50MG SEE DOSAGE TEXT
     Route: 048
     Dates: start: 20041101
  3. DEXAMETHASONE [Suspect]
     Indication: MULTIPLE MYELOMA
     Dosage: 20MG CYCLIC
     Route: 048
     Dates: start: 20041101
  4. CEFEPIME [Concomitant]
  5. VANCOMYCIN [Concomitant]
  6. AMBISOME [Concomitant]
  7. ACYCLOVIR [Concomitant]
  8. GLYBURIDE [Concomitant]
  9. PROTONIX [Concomitant]
  10. NIACIN [Concomitant]
  11. ATENOLOL [Concomitant]
  12. PLAVIX [Concomitant]
  13. PRAVACHOL [Concomitant]

REACTIONS (6)
  - ADENOVIRUS INFECTION [None]
  - DYSPNOEA [None]
  - LUNG INFECTION [None]
  - OXYGEN SATURATION DECREASED [None]
  - PNEUMONIA [None]
  - TRACHEOBRONCHITIS [None]
